FAERS Safety Report 17170260 (Version 1)
Quarter: 2019Q4

REPORT INFORMATION
  Report Type: Spontaneous
  Country: JP (occurrence: JP)
  Receive Date: 20191218
  Receipt Date: 20191218
  Transmission Date: 20200122
  Serious: Yes (Other)
  Sender: FDA-Public Use
  Company Number: JP-BAYER-2019-226994

PATIENT
  Sex: Female

DRUGS (2)
  1. STIVARGA [Suspect]
     Active Substance: REGORAFENIB
     Dosage: DAILY DOSE 3 DF
     Route: 048
  2. STIVARGA [Suspect]
     Active Substance: REGORAFENIB
     Dosage: DAILY DOSE 4 DF
     Route: 048
     Dates: start: 20190731

REACTIONS (5)
  - Ascites [Recovering/Resolving]
  - Intestinal obstruction [None]
  - Incorrect product administration duration [None]
  - Palmar-plantar erythrodysaesthesia syndrome [None]
  - Nausea [Recovering/Resolving]
